FAERS Safety Report 7996021-2 (Version None)
Quarter: 2011Q4

REPORT INFORMATION
  Report Type: 
  Country: None (occurrence: None)
  Receive Date: 20111220
  Receipt Date: 20111209
  Transmission Date: 20120403
  Serious: Yes (Other)
  Sender: FDA-Public Use
  Company Number: PHHY2011AU96427

PATIENT

DRUGS (1)
  1. CLOZAPINE [Suspect]

REACTIONS (3)
  - EJECTION FRACTION ABNORMAL [None]
  - HEART RATE INCREASED [None]
  - C-REACTIVE PROTEIN INCREASED [None]
